FAERS Safety Report 6236834-0 (Version None)
Quarter: 2009Q2

REPORT INFORMATION
  Report Type: 
  Country: None (occurrence: None)
  Receive Date: 20090619
  Receipt Date: 20090309
  Transmission Date: 20091009
  Serious: Yes (Other)
  Sender: FDA-Public Use
  Company Number: TR-ELI_LILLY_AND_COMPANY-TR200906003995

PATIENT
  Age: 53 Year
  Sex: Female

DRUGS (3)
  1. HUMALOG MIX 75/25 [Suspect]
     Indication: DIABETES MELLITUS
     Dosage: 46 IU, DAILY (1/D)
     Route: 058
     Dates: start: 20080901
  2. HUMALOG MIX 75/25 [Suspect]
     Dosage: 18 IU, EACH EVENING
     Route: 058
     Dates: start: 20080901
  3. DIAFORMIN [Concomitant]
     Indication: DIABETES MELLITUS
     Dosage: UNK, 2/D
     Dates: start: 20000101

REACTIONS (6)
  - ASTHENIA [None]
  - EPISTAXIS [None]
  - FORMICATION [None]
  - INTERVERTEBRAL DISC PROTRUSION [None]
  - PRURITUS [None]
  - WOUND [None]
